FAERS Safety Report 15117376 (Version 4)
Quarter: 2018Q3

REPORT INFORMATION
  Report Type: Report from Study
  Country: PT (occurrence: PT)
  Receive Date: 20180706
  Receipt Date: 20180926
  Transmission Date: 20181010
  Serious: Yes (Life-Threatening, Hospitalization, Disabling)
  Sender: FDA-Public Use
  Company Number: PT-CELGENEUS-PRT-20180701121

PATIENT
  Age: 80 Year
  Sex: Female
  Weight: 58.5 kg

DRUGS (4)
  1. AZACITIDINE. [Suspect]
     Active Substance: AZACITIDINE
     Indication: ACUTE MYELOID LEUKAEMIA
     Dosage: 75 MILLIGRAM/SQ. METER
     Route: 058
     Dates: start: 20180627, end: 20180705
  2. CEFEPIME [Concomitant]
     Active Substance: CEFEPIME HYDROCHLORIDE
     Indication: FEBRILE NEUTROPENIA
     Dosage: 48000 MILLIGRAM
     Route: 041
     Dates: start: 20180628, end: 20180702
  3. AG?221 [Suspect]
     Active Substance: ENASIDENIB
     Indication: ACUTE MYELOID LEUKAEMIA
     Dosage: 100 MILLIGRAM
     Route: 048
     Dates: start: 20180627, end: 20180724
  4. AZACITIDINE. [Suspect]
     Active Substance: AZACITIDINE
     Dosage: 75 MILLIGRAM/SQ. METER
     Route: 058
     Dates: start: 20180710, end: 20180724

REACTIONS (9)
  - Coma scale abnormal [Recovered/Resolved]
  - Febrile neutropenia [Recovered/Resolved]
  - Macroglossia [Recovered/Resolved]
  - Subdural haematoma [Not Recovered/Not Resolved]
  - Hypokalaemia [Recovered/Resolved]
  - Febrile neutropenia [Recovered/Resolved]
  - Renal impairment [Recovered/Resolved]
  - Dysphagia [Not Recovered/Not Resolved]
  - Altered state of consciousness [Not Recovered/Not Resolved]

NARRATIVE: CASE EVENT DATE: 20180701
